FAERS Safety Report 21464087 (Version 1)
Quarter: 2022Q4

REPORT INFORMATION
  Report Type: Spontaneous
  Country: GB (occurrence: GB)
  Receive Date: 20221017
  Receipt Date: 20221017
  Transmission Date: 20230112
  Serious: Yes (Other)
  Sender: FDA-Public Use
  Company Number: GB-MHRA-MED-202210100839190450-DJWZG

PATIENT
  Sex: Female

DRUGS (3)
  1. CITALOPRAM [Suspect]
     Active Substance: CITALOPRAM HYDROBROMIDE
     Indication: Depression
     Dosage: 20 MILLIGRAM, ONCE A DAY
     Route: 065
     Dates: start: 20190909
  2. Levest [Concomitant]
     Indication: Contraception
     Dosage: UNK
     Route: 065
     Dates: start: 20210827
  3. LEVETIRACETAM [Concomitant]
     Active Substance: LEVETIRACETAM
     Indication: Restlessness
     Dosage: UNK
     Route: 065
     Dates: start: 20211022

REACTIONS (1)
  - Restlessness [Not Recovered/Not Resolved]
